FAERS Safety Report 12093710 (Version 1)
Quarter: 2016Q1

REPORT INFORMATION
  Report Type: Spontaneous
  Country: CA (occurrence: CA)
  Receive Date: 20160219
  Receipt Date: 20160219
  Transmission Date: 20160526
  Serious: Yes (Other)
  Sender: FDA-Public Use
  Company Number: CA-PFIZER INC-2016090820

PATIENT
  Age: 64 Year
  Sex: Female
  Weight: 113 kg

DRUGS (5)
  1. CRESTOR [Suspect]
     Active Substance: ROSUVASTATIN CALCIUM
     Indication: LOW DENSITY LIPOPROTEIN DECREASED
     Dosage: 5.0 MG, UNK
     Route: 048
  2. CRESTOR [Suspect]
     Active Substance: ROSUVASTATIN CALCIUM
     Indication: HIGH DENSITY LIPOPROTEIN INCREASED
  3. MAGNESIUM [Concomitant]
     Active Substance: MAGNESIUM
  4. LIPITOR [Suspect]
     Active Substance: ATORVASTATIN CALCIUM
     Dosage: 20 MG, UNK
     Route: 048
  5. PROBIOTIC /06395501/ [Concomitant]
     Active Substance: BIFIDOBACTERIUM ANIMALIS SUBSP. LACTIS

REACTIONS (12)
  - Hepatic cirrhosis [Unknown]
  - Mood swings [Unknown]
  - Amnesia [Unknown]
  - Fatigue [Unknown]
  - Irritability [Unknown]
  - Liver disorder [Unknown]
  - Rhabdomyolysis [Unknown]
  - Myalgia [Unknown]
  - Non-alcoholic steatohepatitis [Unknown]
  - Sleep disorder [Unknown]
  - Verbal abuse [Unknown]
  - Chromaturia [Unknown]
